FAERS Safety Report 10055188 (Version 1)
Quarter: 2014Q2

REPORT INFORMATION
  Report Type: Spontaneous
  Country: EE (occurrence: EE)
  Receive Date: 20140403
  Receipt Date: 20140403
  Transmission Date: 20141212
  Serious: Yes (Death, Life-Threatening, Hospitalization)
  Sender: FDA-Public Use
  Company Number: EE-B.I. PHARMACEUTICALS,INC./RIDGEFIELD-2014-BI-14396EA

PATIENT
  Age: 82 Year
  Sex: Female

DRUGS (6)
  1. PRADAXA [Suspect]
     Indication: ATRIAL FIBRILLATION
     Dosage: 220 MG
     Route: 048
     Dates: start: 20131018, end: 20131117
  2. MICARDIS/TELMISARTAN [Concomitant]
     Indication: HYPERTENSION
     Dosage: 40 MG
     Route: 048
  3. NEBIVOLOL [Concomitant]
     Indication: HYPERTENSION
     Dosage: DOSE PER APPLICATION AND DAILY DOSE: 2,5(5MG 1/2TABLET)
     Route: 048
  4. TORASEMID [Concomitant]
     Indication: HYPERTENSION
     Dosage: 20 MG
     Route: 048
  5. ATORVASTATIN [Concomitant]
     Indication: HYPERCHOLESTEROLAEMIA
     Dosage: 20 MG
     Route: 048
  6. IMDUR(ISOSORBID MONONITRAT) [Concomitant]
     Indication: ANGINA PECTORIS
     Dosage: DOSE PER APPLICATION AND DAILY DOSE: 30 (60MG 1/2 TABLET)
     Route: 048

REACTIONS (1)
  - Congestive cardiomyopathy [Fatal]
